FAERS Safety Report 6016469-5 (Version None)
Quarter: 2008Q4

REPORT INFORMATION
  Report Type: 
  Country: None (occurrence: None)
  Receive Date: 20081222
  Receipt Date: 20081218
  Transmission Date: 20090506
  Serious: Yes (Other)
  Sender: FDA-Public Use
  Company Number: US-WYE-H07341208

PATIENT
  Sex: Male
  Weight: 60 kg

DRUGS (1)
  1. TORISEL [Suspect]
     Indication: RENAL CELL CARCINOMA
     Route: 042
     Dates: start: 20081209, end: 20081216

REACTIONS (3)
  - BLOOD PRESSURE DECREASED [None]
  - FLUSHING [None]
  - HYPERSENSITIVITY [None]
